FAERS Safety Report 17693377 (Version 4)
Quarter: 2020Q3

REPORT INFORMATION
  Report Type: Report from Study
  Country: CO (occurrence: CO)
  Receive Date: 20200422
  Receipt Date: 20200915
  Transmission Date: 20201102
  Serious: Yes (Hospitalization)
  Sender: FDA-Public Use
  Company Number: CO-JNJFOC-20200420875

PATIENT
  Age: 65 Year
  Sex: Male
  Weight: 70 kg

DRUGS (3)
  1. STELARA [Suspect]
     Active Substance: USTEKINUMAB
     Dosage: 45MG/0,5ML?INTERVAL: WEEK 4
     Route: 058
     Dates: start: 20191108, end: 20191108
  2. STELARA [Suspect]
     Active Substance: USTEKINUMAB
     Indication: PSORIASIS
     Dosage: 45MG/0,5ML
     Route: 058
     Dates: start: 20191002
  3. METHOTREXATE. [Concomitant]
     Active Substance: METHOTREXATE

REACTIONS (5)
  - Vocal cord paralysis [Not Recovered/Not Resolved]
  - Chronic obstructive pulmonary disease [Not Recovered/Not Resolved]
  - Pneumonia [Recovering/Resolving]
  - Rash [Unknown]
  - Oxygen consumption [Recovering/Resolving]

NARRATIVE: CASE EVENT DATE: 202002
